FAERS Safety Report 4971869-7 (Version None)
Quarter: 2006Q2

REPORT INFORMATION
  Report Type: 
  Country: None (occurrence: None)
  Receive Date: 20060413
  Receipt Date: 20051026
  Transmission Date: 20061013
  Serious: Yes (Hospitalization, Disabling)
  Sender: FDA-Public Use
  Company Number: US-MERCK-0510USA09177

PATIENT
  Age: 53 Year
  Sex: Female
  Weight: 84 kg

DRUGS (11)
  1. VIOXX [Suspect]
     Indication: PAIN
     Route: 048
     Dates: start: 19991101, end: 20040501
  2. ADVIL [Concomitant]
     Route: 065
  3. TAGAMET [Concomitant]
     Route: 065
  4. VIOXX [Suspect]
     Indication: MONARTHRITIS
     Route: 048
     Dates: start: 19991101, end: 20040501
  5. ESTRACE [Concomitant]
     Route: 065
  6. LIPITOR [Concomitant]
     Route: 065
  7. SOMA [Concomitant]
     Route: 065
  8. MOTRIN [Concomitant]
     Route: 065
  9. VICODIN [Concomitant]
     Route: 065
  10. ALBUTEROL [Concomitant]
     Route: 065
  11. BECONASE [Concomitant]
     Route: 065

REACTIONS (25)
  - ACUTE CORONARY SYNDROME [None]
  - ARTHROPATHY [None]
  - CARDIAC DISORDER [None]
  - CHEST DISCOMFORT [None]
  - CHEST PAIN [None]
  - CORONARY ARTERY DISEASE [None]
  - DYSARTHRIA [None]
  - DYSPNOEA [None]
  - FACE OEDEMA [None]
  - GASTROOESOPHAGEAL REFLUX DISEASE [None]
  - HYPERLIPIDAEMIA [None]
  - HYPOTHYROIDISM [None]
  - MENTAL DISORDER [None]
  - MYOCARDIAL INFARCTION [None]
  - NECK INJURY [None]
  - NEPHROLITHIASIS [None]
  - OTITIS MEDIA [None]
  - PAIN IN EXTREMITY [None]
  - PERIARTHRITIS [None]
  - PERIOSTITIS [None]
  - RENAL FAILURE ACUTE [None]
  - ROAD TRAFFIC ACCIDENT [None]
  - ROTATOR CUFF SYNDROME [None]
  - TENDONITIS [None]
  - TOE DEFORMITY [None]
